FAERS Safety Report 25895511 (Version 2)
Quarter: 2025Q4

REPORT INFORMATION
  Report Type: Spontaneous
  Country: AU (occurrence: AU)
  Receive Date: 20251008
  Receipt Date: 20251205
  Transmission Date: 20260118
  Serious: Yes (Hospitalization, Other)
  Sender: CSL BEHRING
  Company Number: AU-BEH-2023166381

PATIENT
  Age: 14 Year
  Sex: Female
  Weight: 87.2 kg

DRUGS (14)
  1. HUMAN IMMUNOGLOBULIN G [Suspect]
     Active Substance: HUMAN IMMUNOGLOBULIN G
     Indication: Encephalitis autoimmune
     Dosage: 80 GRAM IN 2 DIVISIONS EVERY 4 WEEKS
     Route: 042
     Dates: start: 20230615, end: 20230616
  2. HUMAN IMMUNOGLOBULIN G [Suspect]
     Active Substance: HUMAN IMMUNOGLOBULIN G
     Dosage: 60 G, EVERY 8 WEEKS
     Route: 042
     Dates: start: 20250711, end: 20250711
  3. HUMAN IMMUNOGLOBULIN G [Suspect]
     Active Substance: HUMAN IMMUNOGLOBULIN G
     Dosage: 60 G, EVERY 8 WEEKS
     Route: 042
     Dates: start: 20250711, end: 20250711
  4. CLOZAPINE [Concomitant]
     Active Substance: CLOZAPINE
     Indication: Encephalitis
     Dosage: 100 MILLIGRAM
     Dates: start: 20230518
  5. CLOZAPINE [Concomitant]
     Active Substance: CLOZAPINE
     Indication: Psychotic disorder
     Dosage: 375 MG
     Route: 048
  6. CLOZAPINE [Concomitant]
     Active Substance: CLOZAPINE
     Dosage: 350 MG
     Route: 048
  7. DIAZEPAM [Concomitant]
     Active Substance: DIAZEPAM
     Dosage: 5 MILLIGRAM
     Dates: start: 20230519
  8. LAMOTRIGINE [Concomitant]
     Active Substance: LAMOTRIGINE
     Indication: Seizure
     Dosage: 25 MILLIGRAM
     Dates: start: 20230518
  9. METHYLPREDNISOLONE [Concomitant]
     Active Substance: METHYLPREDNISOLONE
     Dosage: 1000 MILLIGRAM
     Dates: start: 20230615
  10. ACETAMINOPHEN [Concomitant]
     Active Substance: ACETAMINOPHEN
     Indication: Premedication
  11. OMEPRAZOLE [Concomitant]
     Active Substance: OMEPRAZOLE
     Indication: Reflux gastritis
     Dosage: 20 MG
     Route: 048
  12. OMEPRAZOLE [Concomitant]
     Active Substance: OMEPRAZOLE
     Indication: Premedication
  13. LITHIUM [Concomitant]
     Active Substance: LITHIUM
     Indication: Psychotic disorder
     Dosage: 750 MG
     Route: 048
  14. MINOCYCLINE [Concomitant]
     Active Substance: MINOCYCLINE HYDROCHLORIDE
     Indication: Acne
     Dosage: 50 MG
     Route: 048

REACTIONS (22)
  - Dissociative disorder [Recovered/Resolved]
  - Seizure [Recovered/Resolved]
  - Hypertension [Recovered/Resolved]
  - Altered state of consciousness [Recovered/Resolved]
  - Unresponsive to stimuli [Recovered/Resolved]
  - Clonus [Recovered/Resolved]
  - Pallor [Recovered/Resolved]
  - Tremor [Recovered/Resolved]
  - Blepharospasm [Recovered/Resolved]
  - Heart rate increased [Recovered/Resolved]
  - Respiratory rate increased [Recovered/Resolved]
  - Headache [Recovered/Resolved]
  - Headache [Recovered/Resolved]
  - Back pain [Recovered/Resolved]
  - Headache [Recovered/Resolved]
  - Myalgia [Recovered/Resolved]
  - Blood pressure systolic increased [Recovered/Resolved]
  - Body temperature increased [Recovered/Resolved]
  - Heart rate increased [Recovered/Resolved]
  - Chest pain [Recovered/Resolved]
  - Gastrooesophageal reflux disease [Recovered/Resolved]
  - Off label use [Unknown]

NARRATIVE: CASE EVENT DATE: 20230615
